FAERS Safety Report 11925901 (Version 3)
Quarter: 2016Q1

REPORT INFORMATION
  Report Type: Spontaneous
  Country: US (occurrence: US)
  Receive Date: 20160119
  Receipt Date: 20160127
  Transmission Date: 20160526
  Serious: Yes (Hospitalization, Disabling)
  Sender: FDA-Public Use
  Company Number: US-ROCHE-1695899

PATIENT
  Age: 74 Year
  Sex: Female

DRUGS (2)
  1. XELODA [Suspect]
     Active Substance: CAPECITABINE
     Indication: COLON CANCER
     Dosage: AM
     Route: 048
  2. XELODA [Suspect]
     Active Substance: CAPECITABINE
     Dosage: PM
     Route: 048

REACTIONS (6)
  - Stomatitis [Recovering/Resolving]
  - Colitis [Unknown]
  - Diarrhoea [Recovering/Resolving]
  - Inflammation [Recovering/Resolving]
  - Oral pain [Unknown]
  - Enteritis [Unknown]

NARRATIVE: CASE EVENT DATE: 20160101
